FAERS Safety Report 6747376-8 (Version None)
Quarter: 2010Q2

REPORT INFORMATION
  Report Type: 
  Country: None (occurrence: None)
  Receive Date: 20100528
  Receipt Date: 20100519
  Transmission Date: 20101027
  Serious: Yes (Hospitalization)
  Sender: FDA-Public Use
  Company Number: B0653543A

PATIENT
  Age: 14 Year
  Sex: Female

DRUGS (7)
  1. ZOVIRAX [Suspect]
     Indication: DRUG USE FOR UNKNOWN INDICATION
     Dosage: 150MG THREE TIMES PER DAY
     Route: 042
     Dates: start: 20100220, end: 20100414
  2. IMIPENEM AND CILASTATIN [Suspect]
     Indication: DRUG USE FOR UNKNOWN INDICATION
     Dosage: 450MG TWICE PER DAY
     Route: 042
     Dates: start: 20100219, end: 20100402
  3. VANCOMYCIN HCL [Suspect]
     Indication: DRUG USE FOR UNKNOWN INDICATION
     Route: 042
     Dates: start: 20100219, end: 20100402
  4. LAMISIL [Suspect]
     Indication: DRUG USE FOR UNKNOWN INDICATION
     Dosage: 250MG UNKNOWN
     Route: 048
     Dates: start: 20100225, end: 20100324
  5. ZOLOFT [Concomitant]
     Route: 048
     Dates: start: 20100316, end: 20100405
  6. ANCOTIL [Concomitant]
     Route: 065
     Dates: start: 20100324
  7. BACTRIM [Concomitant]
     Route: 042
     Dates: start: 20091230, end: 20100414

REACTIONS (5)
  - DERMATITIS EXFOLIATIVE [None]
  - GENERAL PHYSICAL HEALTH DETERIORATION [None]
  - HYPERTHERMIA [None]
  - PRURITUS [None]
  - SKIN EXFOLIATION [None]
